FAERS Safety Report 7194326-9 (Version None)
Quarter: 2010Q4

REPORT INFORMATION
  Report Type: 
  Country: None (occurrence: None)
  Receive Date: 20101124
  Receipt Date: 20101001
  Transmission Date: 20110411
  Serious: No
  Sender: FDA-Public Use
  Company Number: 019883

PATIENT
  Sex: Female
  Weight: 72 kg

DRUGS (3)
  1. LACOSAMIDE [Suspect]
     Indication: EPILEPSY
     Dosage: (100 MG BID ORAL)
     Route: 048
     Dates: start: 20100601
  2. TOPAMAX [Concomitant]
  3. LORAZEPAM [Concomitant]

REACTIONS (1)
  - CONVULSION [None]
